FAERS Safety Report 5081616-9 (Version None)
Quarter: 2006Q3

REPORT INFORMATION
  Report Type: 
  Country: None (occurrence: None)
  Receive Date: 20060810
  Receipt Date: 20060807
  Transmission Date: 20061208
  Serious: Yes (Other)
  Sender: FDA-Public Use
  Company Number: 2006095732

PATIENT
  Age: 63 Year
  Sex: Male

DRUGS (3)
  1. ATORVASTATIN CALCIUM [Suspect]
     Indication: DRUG USE FOR UNKNOWN INDICATION
     Dosage: 10 MG (10 MG, 1 IN 1 D), ORAL
     Route: 048
     Dates: start: 20060608, end: 20060617
  2. LEVETIRACETAM [Suspect]
     Indication: EPILEPSY
     Dosage: 1.5 GRAM (1000 MG,1 IN 1 D), ORAL
     Route: 048
     Dates: start: 20060608, end: 20060617
  3. CLONAZEPAM [Suspect]
     Indication: DRUG USE FOR UNKNOWN INDICATION
     Dosage: 1.5 MG (0.5 MG, 1 IN 1 D), ORAL
     Route: 048
     Dates: start: 20060608, end: 20060617

REACTIONS (3)
  - COORDINATION ABNORMAL [None]
  - DIZZINESS [None]
  - FALL [None]
